FAERS Safety Report 24631816 (Version 1)
Quarter: 2024Q4

REPORT INFORMATION
  Report Type: Report from Study
  Country: US (occurrence: US)
  Receive Date: 20241118
  Receipt Date: 20241118
  Transmission Date: 20250115
  Serious: Yes (Hospitalization)
  Sender: PAREXEL
  Company Number: US-Stemline Therapeutics, Inc.-2023ST004641

PATIENT

DRUGS (1)
  1. ORSERDU [Suspect]
     Active Substance: ELACESTRANT
     Indication: Breast cancer female
     Dosage: 345 MG, ONCE DAILY
     Route: 048
     Dates: start: 20230823

REACTIONS (8)
  - Illness [Unknown]
  - Throat clearing [Unknown]
  - Malaise [Unknown]
  - COVID-19 [Unknown]
  - Product dose omission in error [Recovered/Resolved]
  - Frequent bowel movements [Unknown]
  - Gastrooesophageal reflux disease [Unknown]
  - Asthenia [Unknown]
